FAERS Safety Report 5015689-6 (Version None)
Quarter: 2006Q2

REPORT INFORMATION
  Report Type: 
  Country: None (occurrence: None)
  Receive Date: 20060601
  Receipt Date: 20060522
  Transmission Date: 20061013
  Serious: Yes (Other)
  Sender: FDA-Public Use
  Company Number: NL-GLAXOSMITHKLINE-B0425911A

PATIENT
  Age: 27 Year
  Sex: Male
  Weight: 80 kg

DRUGS (4)
  1. CEFTAZIDIME SODIUM [Suspect]
     Indication: PSEUDOMONAS INFECTION
     Dosage: 3000MG PER DAY
     Route: 065
     Dates: start: 20060429, end: 20060502
  2. FLOXACILLIN SODIUM [Suspect]
     Indication: PSEUDOMONAS INFECTION
     Dosage: 1000MG PER DAY
     Route: 065
     Dates: start: 20060429, end: 20060502
  3. PULMOZYME [Concomitant]
     Dosage: 2.5MG PER DAY
     Route: 055
  4. COLISTIN [Concomitant]
     Dosage: 160MG PER DAY
     Route: 055

REACTIONS (2)
  - CONVULSION [None]
  - ENCEPHALOPATHY [None]
